FAERS Safety Report 8955341 (Version 1)
Quarter: 2012Q4

REPORT INFORMATION
  Report Type: Report from Study
  Country: BR (occurrence: BR)
  Receive Date: 20121207
  Receipt Date: 20121207
  Transmission Date: 20130627
  Serious: Yes (Death)
  Sender: FDA-Public Use
  Company Number: BR-ROCHE-1165426

PATIENT
  Age: 62 Year
  Sex: Female

DRUGS (1)
  1. TOCILIZUMAB [Suspect]
     Indication: PRODUCT USED FOR UNKNOWN INDICATION
     Route: 042
     Dates: start: 20121001, end: 20121116

REACTIONS (1)
  - Death [Fatal]
